FAERS Safety Report 7355096-4 (Version None)
Quarter: 2011Q1

REPORT INFORMATION
  Report Type: 
  Country: None (occurrence: None)
  Receive Date: 20110316
  Receipt Date: 20110308
  Transmission Date: 20110831
  Serious: Yes (Other)
  Sender: FDA-Public Use
  Company Number: FR-JNJFOC-20100305248

PATIENT
  Age: 64 Year
  Sex: Male

DRUGS (3)
  1. AMOXICILLIN/ CLAVULANIC ACID [Concomitant]
     Indication: COUGH
     Route: 065
  2. PYOSTACINE [Concomitant]
     Indication: COUGH
     Route: 065
  3. TAVANIC [Suspect]
     Indication: COUGH
     Route: 065

REACTIONS (3)
  - LIGAMENT RUPTURE [None]
  - MYALGIA [None]
  - ARTHRALGIA [None]
